FAERS Safety Report 7207994-X (Version None)
Quarter: 2011Q1

REPORT INFORMATION
  Report Type: 
  Country: None (occurrence: None)
  Receive Date: 20110104
  Receipt Date: 20101116
  Transmission Date: 20110831
  Serious: Yes (Hospitalization, Other)
  Sender: FDA-Public Use
  Company Number: AU-ASTRAZENECA-2010SE54938

PATIENT
  Age: 0 Day
  Sex: Male
  Weight: 3.9 kg

DRUGS (6)
  1. LEXAPRO [Concomitant]
     Indication: ANTIDEPRESSANT THERAPY
     Route: 048
  2. SEROQUEL XR [Suspect]
     Indication: PSYCHOTIC DISORDER
     Dosage: 50-100 MG DAILY
     Route: 064
  3. FEFOL [Concomitant]
     Indication: VITAMIN SUPPLEMENTATION
     Dosage: 1 TABLET DAILY FROM THE FIRST TRIMESTER
     Route: 064
  4. LAMOTRIGINE [Suspect]
     Indication: AFFECTIVE DISORDER
     Route: 048
  5. VALPROATE SODIUM [Concomitant]
     Indication: AFFECTIVE DISORDER
     Route: 048
  6. FEFOL [Concomitant]
     Indication: MINERAL SUPPLEMENTATION
     Dosage: 1 TABLET DAILY FROM THE FIRST TRIMESTER
     Route: 064

REACTIONS (1)
  - DRUG WITHDRAWAL SYNDROME NEONATAL [None]
